FAERS Safety Report 8153161-5 (Version None)
Quarter: 2012Q1

REPORT INFORMATION
  Report Type: 
  Country: None (occurrence: None)
  Receive Date: 20120221
  Receipt Date: 20120210
  Transmission Date: 20120608
  Serious: Yes (Other)
  Sender: FDA-Public Use
  Company Number: IT-TEVA-323206ISR

PATIENT
  Sex: Female

DRUGS (1)
  1. BENDAMUSTINE HCL [Suspect]

REACTIONS (2)
  - HEPATIC LESION [None]
  - ADENOCARCINOMA [None]
